FAERS Safety Report 18631269 (Version 1)
Quarter: 2020Q4

REPORT INFORMATION
  Report Type: Spontaneous
  Country: AT (occurrence: AT)
  Receive Date: 20201218
  Receipt Date: 20201218
  Transmission Date: 20210114
  Serious: Yes (Death)
  Sender: FDA-Public Use
  Company Number: AT-JNJFOC-20201232582

PATIENT
  Age: 74 Year
  Sex: Female
  Weight: 58 kg

DRUGS (3)
  1. VELCADE [Concomitant]
     Active Substance: BORTEZOMIB
     Indication: PLASMA CELL MYELOMA
     Dosage: 2,17MG; IN TOTAL
     Route: 058
     Dates: start: 20201207, end: 20201207
  2. DEXAMETHASONE. [Concomitant]
     Active Substance: DEXAMETHASONE
     Indication: PLASMA CELL MYELOMA
     Dosage: 20MG; IN TOTAL
     Route: 065
     Dates: start: 20201207, end: 20201207
  3. DARZALEX [Suspect]
     Active Substance: DARATUMUMAB
     Indication: PLASMA CELL MYELOMA
     Dosage: 1800MG; IN TOTAL
     Route: 058
     Dates: start: 20201207, end: 20201207

REACTIONS (2)
  - Dyspnoea [Fatal]
  - Cardiac arrest [Fatal]
